FAERS Safety Report 6457685-8 (Version None)
Quarter: 2009Q4

REPORT INFORMATION
  Report Type: 
  Country: None (occurrence: None)
  Receive Date: 20091125
  Receipt Date: 20091118
  Transmission Date: 20100525
  Serious: Yes (Hospitalization)
  Sender: FDA-Public Use
  Company Number: US-AMGEN-QUU375553

PATIENT
  Sex: Female

DRUGS (3)
  1. ENBREL [Suspect]
     Indication: RHEUMATOID ARTHRITIS
     Route: 058
     Dates: start: 20070907
  2. METHOTREXATE [Concomitant]
  3. HYDROXYCHLOROQUINE [Concomitant]

REACTIONS (3)
  - INCONTINENCE [None]
  - MUSCLE RUPTURE [None]
  - URINARY TRACT INFECTION [None]
